FAERS Safety Report 12986574 (Version 1)
Quarter: 2016Q4

REPORT INFORMATION
  Report Type: Spontaneous
  Country: US (occurrence: US)
  Receive Date: 20161130
  Receipt Date: 20161130
  Transmission Date: 20170207
  Serious: No
  Sender: FDA-Public Use
  Company Number: US-GLAXOSMITHKLINE-US2016176551

PATIENT
  Sex: Male

DRUGS (1)
  1. PREVACID 24 HR [Suspect]
     Active Substance: LANSOPRAZOLE
     Indication: GASTROOESOPHAGEAL REFLUX DISEASE
     Dosage: UNK
     Route: 048
     Dates: start: 201610, end: 20161120

REACTIONS (5)
  - Dizziness [Recovering/Resolving]
  - Head discomfort [Recovering/Resolving]
  - Off label use [Unknown]
  - Nausea [Recovering/Resolving]
  - Ear discomfort [Recovering/Resolving]

NARRATIVE: CASE EVENT DATE: 201611
